FAERS Safety Report 6925662-6 (Version None)
Quarter: 2010Q3

REPORT INFORMATION
  Report Type: 
  Country: None (occurrence: None)
  Receive Date: 20100813
  Receipt Date: 20100813
  Transmission Date: 20110219
  Serious: No
  Sender: FDA-Public Use
  Company Number: None

PATIENT
  Age: 44 Year
  Sex: Female

DRUGS (2)
  1. FENTANYL [Suspect]
     Indication: BACK PAIN
     Dosage: 100MCG EVERY OTHER DAY TRANSDERMAL
     Route: 062
     Dates: start: 20100602, end: 20100812
  2. FENTANYL [Suspect]
     Indication: SURGERY
     Dosage: 100MCG EVERY OTHER DAY TRANSDERMAL
     Route: 062
     Dates: start: 20100602, end: 20100812

REACTIONS (1)
  - PRODUCT ADHESION ISSUE [None]
